FAERS Safety Report 21496765 (Version 2)
Quarter: 2022Q4

REPORT INFORMATION
  Report Type: Spontaneous
  Country: DE (occurrence: DE)
  Receive Date: 20221022
  Receipt Date: 20221030
  Transmission Date: 20230113
  Serious: Yes (Other)
  Sender: FDA-Public Use
  Company Number: None

PATIENT
  Age: 31 Year
  Sex: Female
  Weight: 75 kg

DRUGS (3)
  1. NAPROXEN [Interacting]
     Active Substance: NAPROXEN
     Indication: Product used for unknown indication
     Dosage: FORM STRENGTH : 500 MG
     Route: 065
  2. RIZATRIPTAN [Interacting]
     Active Substance: RIZATRIPTAN
     Indication: Product used for unknown indication
     Dosage: FORM STRENGTH : 10 MG
     Route: 065
  3. AIMOVIG [Interacting]
     Active Substance: ERENUMAB-AOOE
     Indication: Product used for unknown indication
     Dosage: FORM STRENGTH : 70 MG
     Dates: start: 2022

REACTIONS (8)
  - Loss of consciousness [Recovered/Resolved]
  - Cold sweat [Recovered/Resolved]
  - Constipation [Recovered/Resolved]
  - Abdominal pain [Recovered/Resolved]
  - Chills [Recovered/Resolved]
  - Drug interaction [Recovered/Resolved]
  - Constipation [Recovered/Resolved]
  - Gastrointestinal pain [Recovered/Resolved]

NARRATIVE: CASE EVENT DATE: 20220908
